FAERS Safety Report 17805957 (Version 1)
Quarter: 2020Q2

REPORT INFORMATION
  Report Type: Spontaneous
  Country: CA (occurrence: CA)
  Receive Date: 20200520
  Receipt Date: 20200520
  Transmission Date: 20200714
  Serious: Yes (Life-Threatening, Hospitalization, Other)
  Sender: FDA-Public Use
  Company Number: CA-PFIZER INC-2020195262

PATIENT
  Sex: Male

DRUGS (76)
  1. OXYCODONE [Suspect]
     Active Substance: OXYCODONE
     Dosage: 20 MG
     Route: 065
  2. OXYCONTIN [Suspect]
     Active Substance: OXYCODONE HYDROCHLORIDE
     Dosage: 80 MG, 4 EVERY 1 DAY
     Route: 065
  3. OXYCONTIN [Suspect]
     Active Substance: OXYCODONE HYDROCHLORIDE
     Dosage: 480 MG, 4 EVERY 1 DAY
     Route: 065
  4. OXYCONTIN [Suspect]
     Active Substance: OXYCODONE HYDROCHLORIDE
     Dosage: 480 MG, 5 EVERY 1 DAYS
     Route: 065
  5. OXYCONTIN [Suspect]
     Active Substance: OXYCODONE HYDROCHLORIDE
     Dosage: 560 MG, 3 EVERY 1 DAY
     Route: 065
  6. SUPEUDOL [Suspect]
     Active Substance: OXYCODONE HYDROCHLORIDE
     Dosage: 20 MG
     Route: 065
  7. SUPEUDOL [Suspect]
     Active Substance: OXYCODONE HYDROCHLORIDE
     Dosage: 20 MG
     Route: 065
  8. ANDROGEL [Concomitant]
     Active Substance: TESTOSTERONE
     Dosage: 5 G, 1 EVERY 1 DAYS
     Route: 065
  9. AZITHROMYCIN ANHYDROUS. [Concomitant]
     Active Substance: AZITHROMYCIN ANHYDROUS
     Dosage: 250 MG, 1 EVERY 1 DAYS
     Route: 065
  10. BISACODYL. [Concomitant]
     Active Substance: BISACODYL
     Dosage: 5 MG
     Route: 065
  11. ESCITALOPRAM OXALATE. [Concomitant]
     Active Substance: ESCITALOPRAM OXALATE
     Dosage: 20 MG, 1 EVERY 1 DAYS
     Route: 065
  12. HYDERM [HYDROCORTISONE ACETATE] [Concomitant]
     Route: 065
  13. LORAZEPAM. [Concomitant]
     Active Substance: LORAZEPAM
     Dosage: 1 MG, 4 EVERY 1 DAYS
     Route: 065
  14. POVIDONE-IODINE. [Concomitant]
     Active Substance: POVIDONE-IODINE
     Dosage: UNK
     Route: 065
  15. FENTANYL. [Suspect]
     Active Substance: FENTANYL
     Dosage: 50 UG, 1 EVERY 1 HOUR
  16. OXYCONTIN [Suspect]
     Active Substance: OXYCODONE HYDROCHLORIDE
     Dosage: 560 MG, 5 EVERY 1 DAY
     Route: 065
  17. OXYCONTIN [Suspect]
     Active Substance: OXYCODONE HYDROCHLORIDE
     Dosage: 480 MG, 1 EVERY 8 HOURS
     Route: 065
  18. FAMOTIDINE. [Concomitant]
     Active Substance: FAMOTIDINE
     Dosage: 40 MG
     Route: 065
  19. TAMSULOSIN RATIOPHARM [Concomitant]
     Dosage: 0.8 MG, 1 EVERY 1 DAYS
     Route: 065
  20. ZOPICLONE [Concomitant]
     Active Substance: ZOPICLONE
     Dosage: 15 MG
     Route: 065
  21. OXYCODONE HYDROCHLORIDE. [Suspect]
     Active Substance: OXYCODONE HYDROCHLORIDE
     Dosage: 20 MG
     Route: 065
  22. OXYNEO [Suspect]
     Active Substance: OXYCODONE
     Dosage: 480 MG, 5 EVERY 1 DAY
     Route: 065
  23. CELEBREX [Concomitant]
     Active Substance: CELECOXIB
     Dosage: 200 MG, 2 EVERY 1 DAYS
     Route: 065
  24. CIPROFLOXACIN. [Concomitant]
     Active Substance: CIPROFLOXACIN
     Dosage: 500 MG, 2 EVERY 1 DAYS
     Route: 065
  25. FOLIC ACID. [Concomitant]
     Active Substance: FOLIC ACID
     Dosage: 5 MG
     Route: 065
  26. SOFLAX [DOCUSATE SODIUM] [Concomitant]
     Dosage: 200 MG
     Route: 065
  27. ZYLOPRIM [Concomitant]
     Active Substance: ALLOPURINOL
     Dosage: 300 MG, 1 EVERY 1 DAYS
     Route: 065
  28. OXYCODONE HYDROCHLORIDE. [Suspect]
     Active Substance: OXYCODONE HYDROCHLORIDE
     Dosage: 20 MG
     Route: 065
  29. OXYCONTIN [Suspect]
     Active Substance: OXYCODONE HYDROCHLORIDE
     Dosage: 400 MG, 1 EVERY 8 HOURS
     Route: 065
  30. OXYCONTIN [Suspect]
     Active Substance: OXYCODONE HYDROCHLORIDE
     Dosage: 640 MG, 5 EVERY 1 DAY
     Route: 065
  31. AZITHROMYCIN ANHYDROUS. [Concomitant]
     Active Substance: AZITHROMYCIN ANHYDROUS
     Dosage: 250 MG, 1 EVERY 1 DAYS
     Route: 065
  32. CIPROFLOXACIN HYDROCHLORIDE. [Concomitant]
     Active Substance: CIPROFLOXACIN HYDROCHLORIDE
     Dosage: 1000 MG, 1 EVERY 1 DAYS
     Route: 065
  33. CITALOPRAM [Concomitant]
     Active Substance: CITALOPRAM HYDROBROMIDE
     Dosage: 40 MG, 1 EVERY 1 DAYS
     Route: 065
  34. CYMBALTA [Concomitant]
     Active Substance: DULOXETINE HYDROCHLORIDE
     Dosage: 60 MG, 1 EVERY 1 DAYS
     Route: 065
  35. MOXIFLOXACIN HYDROCHLORIDE. [Concomitant]
     Active Substance: MOXIFLOXACIN HYDROCHLORIDE
     Dosage: 400 MG, 1 EVERY 1 DAYS
     Route: 065
  36. FENTANYL. [Suspect]
     Active Substance: FENTANYL
     Dosage: 25 UG, 1 EVERY 1 HOUR
  37. FENTANYL. [Suspect]
     Active Substance: FENTANYL
     Dosage: 100 UG, 1 EVERY 1 HOUR
  38. OXYNEO [Suspect]
     Active Substance: OXYCODONE
     Dosage: 400 MG, 4 EVERY 1 DAY
     Route: 065
  39. OXYNEO [Suspect]
     Active Substance: OXYCODONE
     Dosage: 40 MG
  40. AMOXICILLIN AND CLAVUNATE POTASSIUM [Concomitant]
     Active Substance: AMOXICILLIN\CLAVULANATE POTASSIUM
     Dosage: 1 DF, 3 EVERY 1 DAY
     Route: 065
  41. AZITHROMYCIN ANHYDROUS. [Concomitant]
     Active Substance: AZITHROMYCIN ANHYDROUS
     Dosage: 250 MG, 1 EVERY 1 DAYS
     Route: 065
  42. HOMATROPINE HYDROBROMIDE. [Concomitant]
     Active Substance: HOMATROPINE HYDROBROMIDE
     Dosage: 1 DROP, 3 EVERY 1 DAYS
     Route: 047
  43. SOFLAX [DOCUSATE SODIUM] [Concomitant]
     Dosage: 400 MG
     Route: 065
  44. SOFLAX [DOCUSATE SODIUM] [Concomitant]
     Dosage: 100 MG
     Route: 065
  45. ZYMAR [Concomitant]
     Active Substance: GATIFLOXACIN
     Dosage: 1 DROP, 4 EVERY 1 DAYS
     Route: 047
  46. FENTANYL. [Suspect]
     Active Substance: FENTANYL
     Dosage: 75 UG, 1 EVERY 1 HOUR
  47. OXYCONTIN [Suspect]
     Active Substance: OXYCODONE HYDROCHLORIDE
     Dosage: 640 MG, 5 EVERY 1 DAY
     Route: 065
  48. CYMBALTA [Concomitant]
     Active Substance: DULOXETINE HYDROCHLORIDE
     Dosage: 120 MG, 1 EVERY 1 DAYS
     Route: 065
  49. ESCITALOPRAM OXALATE. [Concomitant]
     Active Substance: ESCITALOPRAM OXALATE
     Dosage: 20 MG
     Route: 065
  50. KETOROLAC [Concomitant]
     Active Substance: KETOROLAC TROMETHAMINE
     Dosage: 1 DROP, 4 EVERY 1 DAYS
     Route: 047
  51. NADOLOL. [Concomitant]
     Active Substance: NADOLOL
     Dosage: 80 MG, 1 EVERY 1 DAYS
     Route: 065
  52. NORFLOXACIN [Concomitant]
     Active Substance: NORFLOXACIN
     Dosage: 800 MG, 1 EVERY 1 DAYS
     Route: 065
  53. SULFAMETHOXAZOLE AND TRIMETHOPRIM [Concomitant]
     Active Substance: SULFAMETHOXAZOLE\TRIMETHOPRIM
     Dosage: 1 DF, 2 EVERY 1 DAYS
     Route: 065
  54. TOBRADEX [Concomitant]
     Active Substance: DEXAMETHASONE\TOBRAMYCIN
     Dosage: 1 DROP, 2 EVERY 1 DAYS
     Route: 047
  55. FENTANYL. [Suspect]
     Active Substance: FENTANYL
     Dosage: 75 UG, 1 EVERY 1 HOUR
  56. FENTANYL. [Suspect]
     Active Substance: FENTANYL
     Dosage: 25 UG, 1 EVERY 1 HOUR
     Route: 065
  57. OXYCONTIN [Suspect]
     Active Substance: OXYCODONE HYDROCHLORIDE
     Dosage: 640 MG, 5 EVERY 1 DAY
     Route: 065
  58. OXYNEO [Suspect]
     Active Substance: OXYCODONE
     Dosage: 640 MG, 5 EVERY 1 DAY
     Route: 065
  59. EPREX [Concomitant]
     Active Substance: ERYTHROPOIETIN
     Dosage: 0.5 ML, 1 EVERY 1 WEEKS
     Route: 058
  60. FAMOTIDINE. [Concomitant]
     Active Substance: FAMOTIDINE
     Dosage: 40 MG, 2 EVERY 1 DAYS
     Route: 065
  61. SENOKOT [Concomitant]
     Active Substance: SENNOSIDES
     Dosage: 17.2 MG, 2 EVERY 1 DAYS
     Route: 065
  62. SOFLAX [DOCUSATE SODIUM] [Concomitant]
     Dosage: 200 MG
     Route: 065
  63. TOBRADEX [Concomitant]
     Active Substance: DEXAMETHASONE\TOBRAMYCIN
     Dosage: 1 DF, 3 EVERY 1 DAYS
     Route: 061
  64. HYDROMORPHONE HYDROCHLORIDE. [Suspect]
     Active Substance: HYDROMORPHONE HYDROCHLORIDE
     Dosage: 1 MG
     Route: 065
  65. OXYCODONE [Suspect]
     Active Substance: OXYCODONE
     Dosage: 20 MG
     Route: 065
  66. OXYCODONE [Suspect]
     Active Substance: OXYCODONE
     Dosage: 40 MG
     Route: 065
  67. OXYCODONE HYDROCHLORIDE. [Suspect]
     Active Substance: OXYCODONE HYDROCHLORIDE
     Dosage: 20 MG
     Route: 065
  68. OXYNEO [Suspect]
     Active Substance: OXYCODONE
     Dosage: 360 MG, 4 EVERY 1 DAY
     Route: 065
  69. SUPEUDOL [Suspect]
     Active Substance: OXYCODONE HYDROCHLORIDE
     Dosage: 40 MG
     Route: 065
  70. CILAZAPRIL MONOHYDRATE\HYDROCHLOROTHIAZIDE [Concomitant]
     Active Substance: CILAZAPRIL MONOHYDRATE\HYDROCHLOROTHIAZIDE
     Dosage: 1 DF, 2 EVERY 1 DAYS
     Route: 065
  71. CYMBALTA [Concomitant]
     Active Substance: DULOXETINE HYDROCHLORIDE
     Dosage: 30 MG, 1 EVERY 1 DAYS
     Route: 065
  72. FLOMAX [Concomitant]
     Active Substance: TAMSULOSIN HYDROCHLORIDE
     Dosage: 0.8 MG, 1 EVERY 1 DAYS
     Route: 065
  73. MACROBID [CLARITHROMYCIN] [Concomitant]
     Active Substance: CLARITHROMYCIN
     Dosage: 100 MG, 1 EVERY 1 DAYS
     Route: 065
  74. PREDNISOLONE ACETATE. [Concomitant]
     Active Substance: PREDNISOLONE ACETATE
     Dosage: 1 DROP, 4 EVERY 1 DAYS
     Route: 047
  75. SILDENAFIL CITRATE. [Concomitant]
     Active Substance: SILDENAFIL CITRATE
     Dosage: 100 MG
     Route: 065
  76. ZOPICLONE [Concomitant]
     Active Substance: ZOPICLONE
     Dosage: 15 MG
     Route: 065

REACTIONS (12)
  - Bankruptcy [Not Recovered/Not Resolved]
  - Loss of personal independence in daily activities [Not Recovered/Not Resolved]
  - Mental impairment [Not Recovered/Not Resolved]
  - Memory impairment [Not Recovered/Not Resolved]
  - Parent-child problem [Not Recovered/Not Resolved]
  - Fall [Not Recovered/Not Resolved]
  - Near death experience [Not Recovered/Not Resolved]
  - Off label use [Not Recovered/Not Resolved]
  - Drug dependence [Not Recovered/Not Resolved]
  - Marital problem [Not Recovered/Not Resolved]
  - Neck injury [Not Recovered/Not Resolved]
  - Psychological trauma [Not Recovered/Not Resolved]
